FAERS Safety Report 6994192-8 (Version None)
Quarter: 2010Q3

REPORT INFORMATION
  Report Type: 
  Country: None (occurrence: None)
  Receive Date: 20100917
  Receipt Date: 20091001
  Transmission Date: 20110219
  Serious: No
  Sender: FDA-Public Use
  Company Number: US-ASTRAZENECA-2009SE17279

PATIENT
  Sex: Female
  Weight: 83.9 kg

DRUGS (4)
  1. SEROQUEL [Suspect]
     Route: 048
  2. CLONOPIN [Concomitant]
  3. SYMBALTA [Concomitant]
  4. SYMBICORT [Concomitant]

REACTIONS (1)
  - ALOPECIA [None]
